FAERS Safety Report 10540618 (Version 5)
Quarter: 2015Q3

REPORT INFORMATION
  Report Type: Report from Study
  Country: JP (occurrence: JP)
  Receive Date: 20141024
  Receipt Date: 20150804
  Transmission Date: 20151125
  Serious: Yes (Other)
  Sender: FDA-Public Use
  Company Number: JP-JNJFOC-20141003447

PATIENT
  Age: 65 Year
  Sex: Female
  Weight: 51 kg

DRUGS (13)
  1. PEGINTRON [Suspect]
     Active Substance: PEGINTERFERON ALFA-2B
     Indication: CHRONIC HEPATITIS C
     Route: 058
     Dates: start: 20140612, end: 20140814
  2. MUCODYNE [Concomitant]
     Active Substance: CARBOCYSTEINE
     Indication: BRONCHITIS CHRONIC
     Dosage: GRANULATED POWDER
     Route: 048
     Dates: start: 20140310, end: 20140619
  3. PEGINTRON [Suspect]
     Active Substance: PEGINTERFERON ALFA-2B
     Indication: CHRONIC HEPATITIS C
     Route: 058
     Dates: start: 20140306, end: 20140605
  4. SOVRIAD [Suspect]
     Active Substance: SIMEPREVIR
     Indication: CHRONIC HEPATITIS C
     Route: 048
     Dates: start: 20140306, end: 20140528
  5. PEGINTRON [Suspect]
     Active Substance: PEGINTERFERON ALFA-2B
     Indication: CHRONIC HEPATITIS C
     Route: 058
     Dates: start: 20140306, end: 20140605
  6. XYZAL [Concomitant]
     Active Substance: LEVOCETIRIZINE DIHYDROCHLORIDE
     Indication: BRONCHITIS CHRONIC
     Dosage: GRANULATED POWDER
     Route: 048
     Dates: start: 20140529
  7. RIBAVIRIN. [Suspect]
     Active Substance: RIBAVIRIN
     Indication: CHRONIC HEPATITIS C
     Route: 048
     Dates: start: 20140306, end: 20140819
  8. NORVASC [Concomitant]
     Active Substance: AMLODIPINE BESYLATE
     Indication: HYPERTENSION
     Route: 048
  9. CRAVIT [Concomitant]
     Active Substance: LEVOFLOXACIN
     Indication: BRONCHITIS CHRONIC
     Dosage: GRANULATED POWDER
     Route: 048
     Dates: start: 20140424, end: 20140429
  10. LENDORMIN [Concomitant]
     Active Substance: BROTIZOLAM
     Indication: INSOMNIA
     Route: 048
  11. PEGINTRON [Suspect]
     Active Substance: PEGINTERFERON ALFA-2B
     Indication: CHRONIC HEPATITIS C
     Route: 058
     Dates: start: 20140612, end: 20140814
  12. LOXONIN [Concomitant]
     Active Substance: LOXOPROFEN SODIUM
     Indication: PYREXIA
     Route: 048
     Dates: start: 20140313, end: 20140321
  13. NON-PYRINE COLD PREPARATION [Concomitant]
     Active Substance: UNSPECIFIED INGREDIENT
     Indication: PYREXIA
     Dosage: GRANULATED POWDER
     Route: 048
     Dates: start: 20140307, end: 20140619

REACTIONS (3)
  - Anaemia [Recovered/Resolved]
  - Pyrexia [Recovered/Resolved]
  - Platelet count decreased [Recovered/Resolved]

NARRATIVE: CASE EVENT DATE: 20140313
